FAERS Safety Report 7940713-8 (Version None)
Quarter: 2011Q4

REPORT INFORMATION
  Report Type: 
  Country: None (occurrence: None)
  Receive Date: 20111114
  Receipt Date: 20110505
  Transmission Date: 20120403
  Serious: Yes (Other)
  Sender: FDA-Public Use
  Company Number: 2011S1000327

PATIENT
  Sex: Male
  Weight: 116 kg

DRUGS (2)
  1. ERTAPENEM [Concomitant]
  2. CUBICIN [Suspect]
     Indication: CELLULITIS
     Dosage: 6 MG/KG
     Dates: start: 20110425

REACTIONS (1)
  - NEUROPATHY PERIPHERAL [None]
